FAERS Safety Report 7180043-8 (Version None)
Quarter: 2010Q4

REPORT INFORMATION
  Report Type: 
  Country: None (occurrence: None)
  Receive Date: 20101209
  Receipt Date: 20101129
  Transmission Date: 20110411
  Serious: Yes (Other)
  Sender: FDA-Public Use
  Company Number: 2010US004826

PATIENT
  Age: 74 Year
  Sex: Male
  Weight: 87 kg

DRUGS (11)
  1. PROGRAF [Suspect]
     Indication: LIVER TRANSPLANT
     Dosage: 1 MG, UID/QD, ORAL
     Route: 048
     Dates: start: 19970101
  2. NORVASC [Concomitant]
  3. LANTUS [Concomitant]
  4. NOVOLOG [Concomitant]
  5. COUMADIN [Concomitant]
  6. NORCO (HYDROCODONE BITARTRATE, PARACETAMOL) TABLET [Concomitant]
  7. ALDACTONE [Concomitant]
  8. LASIX (FUROSEMIDE SODIUM) TABLET [Concomitant]
  9. FLEXERIL [Concomitant]
  10. OMEPRAZOLE [Concomitant]
  11. OXYBUTYNIN (OXYBUTYNIN) TABLET [Concomitant]

REACTIONS (2)
  - LIMB INJURY [None]
  - URINARY TRACT INFECTION [None]
